FAERS Safety Report 7484911-9 (Version None)
Quarter: 2011Q2

REPORT INFORMATION
  Report Type: 
  Country: None (occurrence: None)
  Receive Date: 20110517
  Receipt Date: 20110310
  Transmission Date: 20111010
  Serious: Yes (Hospitalization)
  Sender: FDA-Public Use
  Company Number: B0705778A

PATIENT
  Sex: Female

DRUGS (1)
  1. AVANDARYL [Suspect]
     Indication: DIABETES MELLITUS
     Route: 048
     Dates: start: 20060926, end: 20070816

REACTIONS (2)
  - TRANSIENT ISCHAEMIC ATTACK [None]
  - CARDIOVASCULAR DISORDER [None]
